FAERS Safety Report 5724833-4 (Version None)
Quarter: 2008Q2

REPORT INFORMATION
  Report Type: 
  Country: None (occurrence: None)
  Receive Date: 20080501
  Receipt Date: 20080425
  Transmission Date: 20081010
  Serious: Yes (Hospitalization)
  Sender: FDA-Public Use
  Company Number: GB-ROCHE-561201

PATIENT
  Sex: Female
  Weight: 82.6 kg

DRUGS (6)
  1. ORLISTAT [Suspect]
     Indication: OBESITY
     Route: 048
     Dates: start: 20070919
  2. SIMVASTATIN [Concomitant]
     Route: 048
  3. UNSPECIFIED DRUG [Concomitant]
     Indication: OSTEOARTHRITIS
  4. UNSPECIFIED DRUG [Concomitant]
  5. UNSPECIFIED MEDICATIONS [Concomitant]
     Dosage: PATIENT WAS ON A LARGE QUANTITY OF MEDICATIONS AND COULDN'T REMEMBER THE NAMES.
  6. PREDNISOLONE [Concomitant]
     Indication: ILL-DEFINED DISORDER
     Route: 048
     Dates: start: 20071222, end: 20080108

REACTIONS (1)
  - CHRONIC OBSTRUCTIVE PULMONARY DISEASE [None]
